FAERS Safety Report 17170178 (Version 1)
Quarter: 2019Q4

REPORT INFORMATION
  Report Type: Spontaneous
  Country: US (occurrence: US)
  Receive Date: 20191218
  Receipt Date: 20191218
  Transmission Date: 20200122
  Serious: Yes (Other)
  Sender: FDA-Public Use
  Company Number: US-BAYER-2019-227562

PATIENT

DRUGS (1)
  1. CIPRO [Suspect]
     Active Substance: CIPROFLOXACIN HYDROCHLORIDE
     Dosage: UNK
     Dates: start: 2015

REACTIONS (11)
  - Paraesthesia [None]
  - Skin injury [None]
  - Neuropathy peripheral [None]
  - Asthenia [None]
  - Sensory loss [None]
  - Cardiovascular disorder [None]
  - Burning sensation [None]
  - Musculoskeletal injury [None]
  - Neuropsychiatric syndrome [None]
  - Pain [None]
  - Hypoaesthesia [None]
